FAERS Safety Report 9523427 (Version 1)
Quarter: 2013Q1

REPORT INFORMATION
  Report Type: Spontaneous
  Country: US (occurrence: None)
  Receive Date: 20130305
  Receipt Date: 20130305
  Transmission Date: 20140127
  Serious: Yes (Other)
  Sender: FDA-Public Use
  Company Number: 163-21880-12012609

PATIENT
  Age: 68 Year
  Sex: Male
  Weight: 70.3 kg

DRUGS (1)
  1. REVLIMID ( LENALIDOMIDE) (15 MILLIGRAM, CAPSULES) [Suspect]
     Indication: PLASMA CELL MYELOMA
     Route: 048
     Dates: start: 20110802

REACTIONS (2)
  - Thrombosis [None]
  - Oedema peripheral [None]
